FAERS Safety Report 9092230 (Version 1)
Quarter: 2013Q1

REPORT INFORMATION
  Report Type: Spontaneous
  Country: US (occurrence: US)
  Receive Date: 20130131
  Receipt Date: 20130131
  Transmission Date: 20140127
  Serious: No
  Sender: FDA-Public Use
  Company Number: US-009507513-1301USA014329

PATIENT
  Sex: 0

DRUGS (1)
  1. SYLATRON [Suspect]
     Dosage: 296 MICROGRAM, UNK

REACTIONS (3)
  - Underdose [Unknown]
  - Drug label confusion [Unknown]
  - No adverse event [Unknown]
